FAERS Safety Report 6347347-X (Version None)
Quarter: 2009Q3

REPORT INFORMATION
  Report Type: 
  Country: None (occurrence: None)
  Receive Date: 20090910
  Receipt Date: 20090902
  Transmission Date: 20100115
  Serious: Yes (Hospitalization)
  Sender: FDA-Public Use
  Company Number: US-ABBOTT-09P-163-0595062-00

PATIENT
  Sex: Male
  Weight: 86.26 kg

DRUGS (3)
  1. HUMIRA [Suspect]
     Indication: PSORIASIS
     Dates: start: 20080101, end: 20090501
  2. HUMIRA [Suspect]
     Dates: start: 20090812
  3. IBUPROFEN [Concomitant]
     Indication: PAIN

REACTIONS (4)
  - CLAVICLE FRACTURE [None]
  - PSORIASIS [None]
  - RIB FRACTURE [None]
  - ROAD TRAFFIC ACCIDENT [None]
